FAERS Safety Report 13122831 (Version 2)
Quarter: 2017Q1

REPORT INFORMATION
  Report Type: Spontaneous
  Country: SK (occurrence: SK)
  Receive Date: 20170117
  Receipt Date: 20170125
  Transmission Date: 20170428
  Serious: Yes (Hospitalization, Other)
  Sender: FDA-Public Use
  Company Number: SK-BAXALTA-2017BLT000277

PATIENT
  Sex: Female
  Weight: 50 kg

DRUGS (3)
  1. HYQVIA [Suspect]
     Active Substance: HUMAN IMMUNOGLOBULIN G\HYALURONIDASE RECOMBINANT HUMAN
     Indication: IMMUNODEFICIENCY COMMON VARIABLE
     Dosage: 15 G, EVERY 14 DAYS
     Route: 058
     Dates: start: 20161212
  2. SUBCUVIA [Concomitant]
     Active Substance: HUMAN IMMUNOGLOBULIN G
     Indication: IMMUNODEFICIENCY COMMON VARIABLE
  3. HYQVIA [Suspect]
     Active Substance: HUMAN IMMUNOGLOBULIN G\HYALURONIDASE RECOMBINANT HUMAN
     Dosage: 20 G, 1X A MONTH
     Route: 058
     Dates: start: 20151204

REACTIONS (1)
  - Subdural haematoma [Not Recovered/Not Resolved]
